FAERS Safety Report 9906756 (Version 1)
Quarter: 2014Q1

REPORT INFORMATION
  Report Type: Spontaneous
  Country: US (occurrence: US)
  Receive Date: 20140218
  Receipt Date: 20140218
  Transmission Date: 20141002
  Serious: Yes (Hospitalization)
  Sender: FDA-Public Use
  Company Number: US-ELI_LILLY_AND_COMPANY-US201402003213

PATIENT
  Sex: Female

DRUGS (3)
  1. HUMALOG LISPRO [Suspect]
     Indication: TYPE 2 DIABETES MELLITUS
     Dosage: 84 U, QD
     Route: 065
     Dates: start: 2011
  2. HUMALOG LISPRO [Suspect]
     Dosage: 3 U, TID
     Route: 065
  3. LANTUS [Concomitant]
     Indication: TYPE 2 DIABETES MELLITUS
     Dosage: 10 U, QD

REACTIONS (3)
  - Pneumonia [Unknown]
  - Influenza [Unknown]
  - Blood glucose increased [Unknown]
